FAERS Safety Report 21131248 (Version 1)
Quarter: 2022Q3

REPORT INFORMATION
  Report Type: Spontaneous
  Country: US (occurrence: None)
  Receive Date: 20220725
  Receipt Date: 20220725
  Transmission Date: 20221026
  Serious: No
  Sender: FDA-Public Use
  Company Number: None

PATIENT
  Age: 66 Year
  Sex: Female
  Weight: 67.5 kg

DRUGS (19)
  1. METHENAMINE HIPPURATE [Suspect]
     Active Substance: METHENAMINE HIPPURATE
     Indication: Cystitis
     Dosage: OTHER QUANTITY : 1 TABLET(S);?FREQUENCY : EVERY 12 HOURS;?
     Route: 048
     Dates: start: 20220722, end: 20220725
  2. PRISTIQ EXTENDED-RELEASE [Concomitant]
     Active Substance: DESVENLAFAXINE SUCCINATE
  3. METFORMIN [Concomitant]
     Active Substance: METFORMIN HYDROCHLORIDE
  4. BUPROPION [Concomitant]
     Active Substance: BUPROPION
  5. LEVOTHYROXINE [Concomitant]
     Active Substance: LEVOTHYROXINE
  6. MONTELUKAST [Concomitant]
     Active Substance: MONTELUKAST SODIUM
  7. ROSUVASTATIN [Concomitant]
     Active Substance: ROSUVASTATIN
  8. BREO ELLIPTA [Concomitant]
     Active Substance: FLUTICASONE FUROATE\VILANTEROL TRIFENATATE
  9. SPIRIVA RESPIMAT [Concomitant]
  10. MELOXICAM [Concomitant]
     Active Substance: MELOXICAM
  11. XOLAIR [Concomitant]
     Active Substance: OMALIZUMAB
  12. CETIRIZINE [Concomitant]
     Active Substance: CETIRIZINE HYDROCHLORIDE
  13. FLUTICASONE [Concomitant]
     Active Substance: FLUTICASONE
  14. VITAMIN D [Concomitant]
     Active Substance: VITAMIN D NOS
  15. VITAMINS [Concomitant]
     Active Substance: VITAMINS
  16. ASPIRIN [Concomitant]
     Active Substance: ASPIRIN
  17. Co Q 10 [Concomitant]
  18. BIOTIN [Concomitant]
     Active Substance: BIOTIN
  19. IRON [Concomitant]
     Active Substance: IRON

REACTIONS (1)
  - Gastric pH decreased [None]

NARRATIVE: CASE EVENT DATE: 20220723
